FAERS Safety Report 16999239 (Version 1)
Quarter: 2019Q4

REPORT INFORMATION
  Report Type: Report from Study
  Country: GB (occurrence: GB)
  Receive Date: 20191106
  Receipt Date: 20191106
  Transmission Date: 20200122
  Serious: Yes (Other)
  Sender: FDA-Public Use
  Company Number: GB-ROCHE-2453571

PATIENT
  Sex: Female

DRUGS (1)
  1. ROACTEMRA [Suspect]
     Active Substance: TOCILIZUMAB
     Indication: TEMPORAL ARTERITIS
     Route: 058
     Dates: start: 20190930

REACTIONS (8)
  - Dizziness [Unknown]
  - Epistaxis [Unknown]
  - Eye contusion [Unknown]
  - Diarrhoea [Unknown]
  - Face injury [Unknown]
  - Fall [Unknown]
  - Malaise [Unknown]
  - Skin laceration [Unknown]
